FAERS Safety Report 14695080 (Version 2)
Quarter: 2018Q3

REPORT INFORMATION
  Report Type: Spontaneous
  Country: PL (occurrence: PL)
  Receive Date: 20180329
  Receipt Date: 20180731
  Transmission Date: 20181010
  Serious: Yes (Hospitalization, Other)
  Sender: FDA-Public Use
  Company Number: PL-MYLANLABS-2017M1058047

PATIENT
  Age: 24 Year
  Sex: Female

DRUGS (5)
  1. OXCARBAZEPINE. [Suspect]
     Active Substance: OXCARBAZEPINE
     Indication: SEIZURE
     Dosage: UNK
  2. LEVETIRACETAM. [Suspect]
     Active Substance: LEVETIRACETAM
     Indication: SEIZURE
     Dosage: UNK
  3. VALPROATE SANDOZ                   /00228502/ [Suspect]
     Active Substance: VALPROATE SODIUM
     Indication: SEIZURE
     Dosage: UNK
  4. OXCARBAZEPINE. [Suspect]
     Active Substance: OXCARBAZEPINE
     Indication: IDIOPATHIC GENERALISED EPILEPSY
     Dosage: 600 MG, QD
  5. OXCARBAZEPINE. [Suspect]
     Active Substance: OXCARBAZEPINE
     Indication: GENERALISED TONIC-CLONIC SEIZURE

REACTIONS (6)
  - Seizure [Recovered/Resolved]
  - Tremor [Unknown]
  - Weight increased [Unknown]
  - Drug ineffective [Unknown]
  - Alopecia [Unknown]
  - Generalised tonic-clonic seizure [Unknown]
